FAERS Safety Report 4363408-9 (Version None)
Quarter: 2004Q2

REPORT INFORMATION
  Report Type: 
  Country: None (occurrence: None)
  Receive Date: 20040524
  Receipt Date: 20031129
  Transmission Date: 20050107
  Serious: Yes (Death)
  Sender: FDA-Public Use
  Company Number: GB-GLAXOSMITHKLINE-B0316376A

PATIENT
  Age: 69 Year
  Sex: Male
  Weight: 80 kg

DRUGS (3)
  1. REQUIP [Suspect]
     Indication: PARKINSON'S DISEASE
     Dosage: 20MG PER DAY
     Route: 048
     Dates: start: 19990101
  2. ENTACAPONE [Concomitant]
     Indication: PARKINSON'S DISEASE
     Route: 048
     Dates: start: 20030101
  3. SINEMET CR [Concomitant]
     Indication: PARKINSON'S DISEASE
     Route: 048
     Dates: start: 19980101

REACTIONS (1)
  - PNEUMONIA [None]
